FAERS Safety Report 16609816 (Version 1)
Quarter: 2019Q3

REPORT INFORMATION
  Report Type: Report from Study
  Country: US (occurrence: US)
  Receive Date: 20190722
  Receipt Date: 20190722
  Transmission Date: 20191004
  Serious: Yes (Hospitalization)
  Sender: FDA-Public Use
  Company Number: US-ACTELION-A-US2016-139954

PATIENT
  Sex: Female
  Weight: 136.05 kg

DRUGS (7)
  1. LEVAQUIN [Suspect]
     Active Substance: LEVOFLOXACIN
     Indication: PRODUCT USED FOR UNKNOWN INDICATION
     Route: 065
  2. XARELTO [Concomitant]
     Active Substance: RIVAROXABAN
  3. OPSUMIT [Suspect]
     Active Substance: MACITENTAN
     Dosage: 10 MG, QD
     Route: 048
     Dates: start: 20160705
  4. TYVASO [Suspect]
     Active Substance: TREPROSTINIL
     Indication: PRODUCT USED FOR UNKNOWN INDICATION
     Dosage: 3 BREATHS
     Route: 065
  5. OXYGEN. [Concomitant]
     Active Substance: OXYGEN
  6. OPSUMIT [Suspect]
     Active Substance: MACITENTAN
     Indication: PULMONARY ARTERIAL HYPERTENSION
     Dosage: 10 MG, QD
     Route: 048
     Dates: start: 20160705
  7. ADCIRCA [Concomitant]
     Active Substance: TADALAFIL
     Dosage: UNK
     Dates: start: 20180924

REACTIONS (34)
  - Atrial fibrillation [Unknown]
  - Anxiety [Unknown]
  - Respiratory disorder [Not Recovered/Not Resolved]
  - Dyspnoea [Unknown]
  - Clostridium difficile infection [Unknown]
  - Pulmonary hypertension [Unknown]
  - Pain [Unknown]
  - Tendon disorder [Unknown]
  - Costochondritis [Unknown]
  - Fluid overload [Unknown]
  - Chest pain [Unknown]
  - Lip haemorrhage [Unknown]
  - Hypoaesthesia [Unknown]
  - Dizziness [Unknown]
  - Arthralgia [Unknown]
  - Pulmonary oedema [Unknown]
  - Sinusitis [Unknown]
  - Upper respiratory tract infection [Unknown]
  - Tooth infection [Unknown]
  - Disease progression [Unknown]
  - Dehydration [Unknown]
  - Nausea [Not Recovered/Not Resolved]
  - Viral infection [Unknown]
  - Cardiogenic shock [Unknown]
  - Weight decreased [Unknown]
  - Dyspnoea exertional [Unknown]
  - Lip swelling [Unknown]
  - Oedema [Unknown]
  - Asthenia [Unknown]
  - Palpitations [Unknown]
  - Diarrhoea [Unknown]
  - Myalgia [Unknown]
  - Vomiting [Not Recovered/Not Resolved]
  - Feeling abnormal [Unknown]
